FAERS Safety Report 4295391-9 (Version None)
Quarter: 2004Q1

REPORT INFORMATION
  Report Type: 
  Country: None (occurrence: None)
  Receive Date: 20040216
  Receipt Date: 20030711
  Transmission Date: 20041129
  Serious: No
  Sender: FDA-Public Use
  Company Number: US-GLAXOSMITHKLINE-A0416866A

PATIENT
  Age: 53 Year
  Sex: Male

DRUGS (3)
  1. LAMICTAL [Suspect]
     Indication: EPILEPSY
     Dosage: 100MG TWICE PER DAY
     Route: 048
     Dates: start: 20030501, end: 20030601
  2. TRILEPTAL [Concomitant]
  3. MYSOLINE [Concomitant]

REACTIONS (1)
  - RASH [None]
